FAERS Safety Report 5169128-5 (Version None)
Quarter: 2006Q4

REPORT INFORMATION
  Report Type: 
  Country: None (occurrence: None)
  Receive Date: 20061211
  Receipt Date: 20061204
  Transmission Date: 20070319
  Serious: Yes (Other)
  Sender: FDA-Public Use
  Company Number: GB-MERCK-0612GBR00016

PATIENT
  Age: 60 Year
  Sex: Female
  Weight: 63 kg

DRUGS (2)
  1. ZOCOR [Suspect]
     Route: 048
     Dates: end: 20060101
  2. ZOCOR [Suspect]
     Route: 048
     Dates: start: 20060101

REACTIONS (1)
  - OESOPHAGEAL SPASM [None]
